FAERS Safety Report 7772123-0 (Version None)
Quarter: 2011Q3

REPORT INFORMATION
  Report Type: 
  Country: None (occurrence: None)
  Receive Date: 20110922
  Receipt Date: 20110118
  Transmission Date: 20111222
  Serious: No
  Sender: FDA-Public Use
  Company Number: US-ASTRAZENECA-2010SE51232

PATIENT
  Age: 41 Year
  Sex: Male
  Weight: 120.2 kg

DRUGS (7)
  1. CELEXA [Concomitant]
     Indication: ANGER
     Dates: start: 20101001
  2. ASPIRIN [Concomitant]
  3. SEROQUEL [Suspect]
     Indication: ANGER
     Route: 048
     Dates: start: 20100901
  4. FIBER [Concomitant]
  5. FISH OIL [Concomitant]
  6. IBUPROPHEN [Concomitant]
  7. CENTRUM SILVER [Concomitant]

REACTIONS (6)
  - EYE INJURY [None]
  - DRUG DOSE OMISSION [None]
  - CONTUSION [None]
  - ANGER [None]
  - FALL [None]
  - FACE INJURY [None]
